FAERS Safety Report 17250776 (Version 2)
Quarter: 2020Q4

REPORT INFORMATION
  Report Type: Spontaneous
  Country: US (occurrence: US)
  Receive Date: 20200109
  Receipt Date: 20201110
  Transmission Date: 20210113
  Serious: Yes (Other)
  Sender: FDA-Public Use
  Company Number: US-SA-2020SA004759

PATIENT

DRUGS (1)
  1. ZANTAC 75 [Suspect]
     Active Substance: RANITIDINE HYDROCHLORIDE
     Dosage: AT LEAST 5-6 TABLETS OF ZANTAC 75 AND/OR ZANTAC 300 PER DAY
     Route: 065
     Dates: start: 199201, end: 202001

REACTIONS (7)
  - Pancreatic carcinoma [Unknown]
  - Nasal neoplasm [Unknown]
  - Oesophageal carcinoma [Unknown]
  - Anxiety [Unknown]
  - Throat cancer [Unknown]
  - Pain [Unknown]
  - Impaired quality of life [Unknown]

NARRATIVE: CASE EVENT DATE: 20041001
